FAERS Safety Report 6760195-1 (Version None)
Quarter: 2010Q2

REPORT INFORMATION
  Report Type: 
  Country: None (occurrence: None)
  Receive Date: 20100608
  Receipt Date: 20000317
  Transmission Date: 20101027
  Serious: No
  Sender: FDA-Public Use
  Company Number: 1999SUS0794

PATIENT
  Age: 29 Year
  Sex: Female
  Weight: 73 kg

DRUGS (9)
  1. SUSTIVA [Suspect]
     Indication: HIV INFECTION
     Route: 048
     Dates: start: 19990309, end: 19990413
  2. DIDANOSINE [Concomitant]
     Route: 048
     Dates: start: 19990309
  3. STAVUDINE [Concomitant]
     Route: 048
     Dates: start: 19990309
  4. INDINAVIR [Concomitant]
     Route: 048
     Dates: start: 19970909
  5. LAMIVUDINE [Concomitant]
     Route: 048
     Dates: start: 19990413
  6. NELFINAVIR [Concomitant]
     Route: 048
     Dates: start: 19991113
  7. NEVIRAPINE [Concomitant]
     Route: 048
     Dates: start: 19990413
  8. HYDROXYUREA [Concomitant]
  9. AZT [Concomitant]
     Dosage: AES#DOSE_SP_01: PO + IV DURING LABOR AND DELIVERY
     Dates: start: 19991203, end: 19991203

REACTIONS (2)
  - NORMAL NEWBORN [None]
  - PREGNANCY [None]
